FAERS Safety Report 6877179-5 (Version None)
Quarter: 2010Q3

REPORT INFORMATION
  Report Type: 
  Country: None (occurrence: None)
  Receive Date: 20100727
  Receipt Date: 20100727
  Transmission Date: 20110219
  Serious: Yes (Other)
  Sender: FDA-Public Use
  Company Number: None

PATIENT
  Age: 46 Year
  Sex: Female
  Weight: 60.782 kg

DRUGS (1)
  1. AVELOX [Suspect]
     Indication: SINUSITIS
     Dosage: 400 MG 1/DAY PO
     Route: 048
     Dates: start: 20100527, end: 20100603

REACTIONS (4)
  - ARTHRALGIA [None]
  - DIZZINESS [None]
  - FEELING ABNORMAL [None]
  - PAIN IN EXTREMITY [None]
